FAERS Safety Report 25761809 (Version 2)
Quarter: 2025Q3

REPORT INFORMATION
  Report Type: Spontaneous
  Country: US (occurrence: US)
  Receive Date: 20250904
  Receipt Date: 20250908
  Transmission Date: 20251020
  Serious: Yes (Other)
  Sender: PFIZER
  Company Number: US-PFIZER INC-202500174375

PATIENT
  Age: 73 Year
  Sex: Female

DRUGS (1)
  1. PAXLOVID [Suspect]
     Active Substance: NIRMATRELVIR\RITONAVIR
     Indication: COVID-19 treatment
     Dosage: 3 TABLETS TWICE A DAY
     Dates: start: 2025

REACTIONS (8)
  - Knee operation [Unknown]
  - Arthralgia [Unknown]
  - Dysgeusia [Unknown]
  - Nausea [Unknown]
  - Muscle spasms [Unknown]
  - Fall [Unknown]
  - Pain [Unknown]
  - Procedural pain [Unknown]

NARRATIVE: CASE EVENT DATE: 20250101
